FAERS Safety Report 6426904-6 (Version None)
Quarter: 2009Q4

REPORT INFORMATION
  Report Type: 
  Country: None (occurrence: None)
  Receive Date: 20091103
  Receipt Date: 20091103
  Transmission Date: 20100525
  Serious: No
  Sender: FDA-Public Use
  Company Number: None

PATIENT
  Age: 66 Year
  Sex: Male
  Weight: 105.64 kg

DRUGS (1)
  1. VARENICLINE [Suspect]
     Dosage: 1 MG EVERY DAY PO
     Route: 048
     Dates: start: 20080924, end: 20090331

REACTIONS (2)
  - DEPRESSED MOOD [None]
  - DEPRESSION [None]
